FAERS Safety Report 24277262 (Version 1)
Quarter: 2024Q3

REPORT INFORMATION
  Report Type: Spontaneous
  Country: US (occurrence: None)
  Receive Date: 20240903
  Receipt Date: 20240903
  Transmission Date: 20241017
  Serious: Yes (Other)
  Sender: ASTRAZENECA
  Company Number: 2024A197986

PATIENT
  Age: 65 Year
  Sex: Female

DRUGS (4)
  1. SYMBICORT [Suspect]
     Active Substance: BUDESONIDE\FORMOTEROL FUMARATE DIHYDRATE
     Route: 055
  2. DUPIXENT [Suspect]
     Active Substance: DUPILUMAB
     Indication: Asthma
     Dosage: 300MG QOW ( EVERY OTHER WEEK)
     Route: 058
  3. SPIRIVA [Suspect]
     Active Substance: TIOTROPIUM BROMIDE MONOHYDRATE
  4. TRELEGY ELLIPTA [Suspect]
     Active Substance: FLUTICASONE FUROATE\UMECLIDINIUM BROMIDE\VILANTEROL TRIFENATATE

REACTIONS (9)
  - Cataract [Unknown]
  - Osteoporosis [Unknown]
  - Eyelid margin crusting [Unknown]
  - Dry eye [Unknown]
  - Injection site pain [Unknown]
  - Productive cough [Unknown]
  - Alopecia [Unknown]
  - Product dose omission issue [Unknown]
  - Product storage error [Unknown]
